FAERS Safety Report 6163748-7 (Version None)
Quarter: 2009Q2

REPORT INFORMATION
  Report Type: 
  Country: None (occurrence: None)
  Receive Date: 20090420
  Receipt Date: 20090420
  Transmission Date: 20091009
  Serious: Yes (Other)
  Sender: FDA-Public Use
  Company Number: None

PATIENT
  Sex: Male
  Weight: 64 kg

DRUGS (4)
  1. ABRAXANE [Suspect]
     Indication: PERITONEAL MESOTHELIOMA MALIGNANT
     Dosage: 462 MG D1/CYCLE 042
     Dates: start: 20081103, end: 20090330
  2. VANDETANIB [Suspect]
     Indication: PERITONEAL MESOTHELIOMA MALIGNANT
     Dosage: 300 MG QD X 21 DAYS 047
     Dates: start: 20081103, end: 20090413
  3. IRON SUPPLEMENT [Concomitant]
  4. TYLENOL [Concomitant]

REACTIONS (1)
  - PULMONARY EMBOLISM [None]
